FAERS Safety Report 6875639-4 (Version None)
Quarter: 2010Q3

REPORT INFORMATION
  Report Type: 
  Country: None (occurrence: None)
  Receive Date: 20100727
  Receipt Date: 20100726
  Transmission Date: 20110219
  Serious: Yes (Hospitalization)
  Sender: FDA-Public Use
  Company Number: US-JNJFOC-20100509515

PATIENT
  Sex: Female
  Weight: 125 kg

DRUGS (6)
  1. STELARA [Suspect]
     Indication: PSORIASIS
     Route: 058
  2. STELARA [Suspect]
     Route: 058
  3. CYCLOSPORINE [Concomitant]
  4. MIRAPEX [Concomitant]
  5. CELEXA [Concomitant]
  6. JANUVIA [Concomitant]

REACTIONS (1)
  - CEREBROVASCULAR ACCIDENT [None]
